FAERS Safety Report 10970407 (Version 1)
Quarter: 2015Q1

REPORT INFORMATION
  Report Type: Spontaneous
  Country: US (occurrence: None)
  Receive Date: 20150330
  Receipt Date: 20150330
  Transmission Date: 20150721
  Serious: No
  Sender: FDA-Public Use
  Company Number: None

PATIENT
  Age: 52 Year
  Sex: Male
  Weight: 72.58 kg

DRUGS (1)
  1. ESCITALOPRAM TAB 10 MG TORRENT [Suspect]
     Active Substance: ESCITALOPRAM OXALATE
     Indication: ANXIETY DISORDER
     Dosage: 1 TABLET TAKEN BY MOUTH
     Route: 048
     Dates: start: 20150323, end: 20150327

REACTIONS (5)
  - Paraesthesia [None]
  - Panic reaction [None]
  - Abnormal dreams [None]
  - Disturbance in attention [None]
  - Product substitution issue [None]

NARRATIVE: CASE EVENT DATE: 20150323
